APPROVED DRUG PRODUCT: APREMILAST
Active Ingredient: APREMILAST
Strength: 10MG
Dosage Form/Route: TABLET;ORAL
Application: A211897 | Product #001
Applicant: TEVA PHARMACEUTICALS USA INC
Approved: Aug 18, 2022 | RLD: No | RS: No | Type: DISCN